FAERS Safety Report 25817040 (Version 1)
Quarter: 2025Q3

REPORT INFORMATION
  Report Type: Spontaneous
  Country: US (occurrence: US)
  Receive Date: 20250918
  Receipt Date: 20250918
  Transmission Date: 20251020
  Serious: Yes (Hospitalization)
  Sender: APOTEX
  Company Number: US-APOTEX-2025AP030178

PATIENT
  Age: 59 Year
  Sex: Male

DRUGS (3)
  1. SIROLIMUS [Suspect]
     Active Substance: SIROLIMUS
     Indication: Perivascular epithelioid cell tumour
     Dosage: 4 MILLIGRAM, QD
     Route: 048
     Dates: start: 2022, end: 2022
  2. SIROLIMUS [Suspect]
     Active Substance: SIROLIMUS
     Indication: Metastases to the mediastinum
     Dosage: 2 MILLIGRAM, QD
     Route: 048
     Dates: start: 2022
  3. SIROLIMUS [Suspect]
     Active Substance: SIROLIMUS
     Indication: Metastases to lung

REACTIONS (2)
  - Anaemia [Unknown]
  - Chemotherapeutic drug level above therapeutic [Unknown]

NARRATIVE: CASE EVENT DATE: 20220101
